FAERS Safety Report 17742548 (Version 1)
Quarter: 2020Q2

REPORT INFORMATION
  Report Type: Spontaneous
  Country: SE (occurrence: SE)
  Receive Date: 20200505
  Receipt Date: 20200505
  Transmission Date: 20200714
  Serious: Yes (Hospitalization)
  Sender: FDA-Public Use
  Company Number: SE-ACCORD-180718

PATIENT
  Age: 63 Year
  Sex: Male

DRUGS (20)
  1. FURIX (FUROSEMIDE) [Suspect]
     Active Substance: FUROSEMIDE
     Indication: HYPERTENSION
     Dosage: 40 MG TABLET
     Route: 048
     Dates: start: 201708, end: 202003
  2. SIMVASTATIN. [Concomitant]
     Active Substance: SIMVASTATIN
  3. FURIX [Concomitant]
     Dosage: AS REQUIRED
  4. DULOXETINE. [Concomitant]
     Active Substance: DULOXETINE
  5. MIRTAZAPINE. [Concomitant]
     Active Substance: MIRTAZAPINE
  6. METFORMIN [Concomitant]
     Active Substance: METFORMIN HYDROCHLORIDE
  7. VISCOTEARS [Concomitant]
     Active Substance: CARBOMER
     Dosage: AS REQUIRED
  8. NOVOMIX [Concomitant]
     Active Substance: INSULIN ASPART
  9. EPLERENONE. [Suspect]
     Active Substance: EPLERENONE
     Indication: HYPERTENSION
     Route: 048
     Dates: start: 201803, end: 202003
  10. ZOPICLONE [Concomitant]
     Active Substance: ZOPICLONE
     Dosage: AS REQUIRED
  11. BEHEPAN [Concomitant]
  12. BRICANYL [Concomitant]
     Active Substance: TERBUTALINE SULFATE
     Dosage: AS REQUIRED
  13. JARDIANCE [Concomitant]
     Active Substance: EMPAGLIFLOZIN
  14. METOPROLOL. [Concomitant]
     Active Substance: METOPROLOL
  15. ALVEDON [Concomitant]
     Active Substance: ACETAMINOPHEN
     Dosage: AS REQUIRED
  16. ELIQUIS [Concomitant]
     Active Substance: APIXABAN
  17. DUROFERON [Concomitant]
     Active Substance: FERROUS SULFATE
  18. FOLIC ACID. [Concomitant]
     Active Substance: FOLIC ACID
  19. ENALAPRIL [Concomitant]
     Active Substance: ENALAPRIL
  20. KALCIPOS-D FORTE [Concomitant]
     Active Substance: CALCIUM CARBONATE\CHOLECALCIFEROL

REACTIONS (1)
  - Hypotension [Unknown]

NARRATIVE: CASE EVENT DATE: 20200314
